FAERS Safety Report 12681842 (Version 3)
Quarter: 2016Q3

REPORT INFORMATION
  Report Type: Spontaneous
  Country: JP (occurrence: JP)
  Receive Date: 20160824
  Receipt Date: 20160914
  Transmission Date: 20161109
  Serious: Yes (Other)
  Sender: FDA-Public Use
  Company Number: JP-EISAI MEDICAL RESEARCH-EC-2016-019666

PATIENT
  Age: 22 Year
  Sex: Male
  Weight: 35 kg

DRUGS (8)
  1. INOVELON [Suspect]
     Active Substance: RUFINAMIDE
     Indication: TONIC CONVULSION
     Route: 050
     Dates: start: 20160729, end: 20160801
  2. LEVETIRACETAM. [Concomitant]
     Active Substance: LEVETIRACETAM
     Indication: TONIC CONVULSION
     Dosage: UNKNOWN
     Route: 050
  3. CLONAZEPAM. [Concomitant]
     Active Substance: CLONAZEPAM
     Indication: TONIC CONVULSION
     Dosage: UNKNOWN
     Route: 050
  4. LAMICTAL [Concomitant]
     Active Substance: LAMOTRIGINE
     Indication: TONIC CONVULSION
     Dosage: UNKNOWN
     Route: 050
  5. INOVELON [Suspect]
     Active Substance: RUFINAMIDE
     Route: 050
     Dates: start: 20160802, end: 20160805
  6. INOVELON [Suspect]
     Active Substance: RUFINAMIDE
     Route: 050
     Dates: start: 20160819, end: 20160820
  7. INOVELON [Suspect]
     Active Substance: RUFINAMIDE
     Route: 050
     Dates: start: 20160806, end: 20160818
  8. INOVELON [Suspect]
     Active Substance: RUFINAMIDE
     Route: 050
     Dates: start: 20160821, end: 20160822

REACTIONS (1)
  - Status epilepticus [Recovered/Resolved]

NARRATIVE: CASE EVENT DATE: 20160818
